FAERS Safety Report 14349138 (Version 1)
Quarter: 2018Q1

REPORT INFORMATION
  Report Type: Spontaneous
  Country: US (occurrence: US)
  Receive Date: 20180104
  Receipt Date: 20180104
  Transmission Date: 20180509
  Serious: No
  Sender: FDA-Public Use
  Company Number: US-TEVA-735341ACC

PATIENT
  Sex: Female
  Weight: 99.88 kg

DRUGS (1)
  1. DEXTROAMPHETAMINE SULFATE EXTENDED RELEASE CAPSULES [Suspect]
     Active Substance: DEXTROAMPHETAMINE SULFATE
     Indication: ATTENTION DEFICIT/HYPERACTIVITY DISORDER
     Dates: start: 201609

REACTIONS (2)
  - Drug ineffective [Recovered/Resolved]
  - Drug dose omission [Unknown]

NARRATIVE: CASE EVENT DATE: 2016
